FAERS Safety Report 10384170 (Version 1)
Quarter: 2014Q3

REPORT INFORMATION
  Report Type: Other
  Country: US (occurrence: US)
  Receive Date: 20140814
  Receipt Date: 20140814
  Transmission Date: 20150326
  Serious: Yes (Other)
  Sender: FDA-Public Use
  Company Number: US-LUPIN PHARMACEUTICALS INC.-E2B_00002211

PATIENT
  Sex: Male
  Weight: 95.34 kg

DRUGS (2)
  1. LISINOPRIL TABLETS USP 30MG [Suspect]
     Active Substance: LISINOPRIL
     Indication: HYPERTENSION
     Dates: start: 2012
  2. LISINOPRIL TABLETS USP 30MG [Suspect]
     Active Substance: LISINOPRIL
     Dates: end: 2014

REACTIONS (3)
  - Blood uric acid increased [Recovered/Resolved]
  - Joint swelling [Recovered/Resolved]
  - Gout [Recovered/Resolved]
